FAERS Safety Report 4487655-0 (Version None)
Quarter: 2004Q4

REPORT INFORMATION
  Report Type: 
  Country: None (occurrence: None)
  Receive Date: 20041027
  Receipt Date: 20041027
  Transmission Date: 20050328
  Serious: Yes (Hospitalization)
  Sender: FDA-Public Use
  Company Number: None

PATIENT
  Age: 57 Year
  Sex: Female

DRUGS (5)
  1. VANCOCIN HCL [Suspect]
     Indication: PNEUMONIA
     Dosage: UNKNOWN
     Route: 065
     Dates: start: 20031027, end: 20031102
  2. MAXIPIME [Suspect]
  3. ZOVIRAX [Suspect]
  4. TEQUIN [Suspect]
  5. VFEND [Suspect]

REACTIONS (4)
  - ASTERIXIS [None]
  - ATAXIA [None]
  - DELIRIUM [None]
  - DIARRHOEA [None]
